FAERS Safety Report 5688277-6 (Version None)
Quarter: 2008Q1

REPORT INFORMATION
  Report Type: 
  Country: None (occurrence: None)
  Receive Date: 20080328
  Receipt Date: 20080328
  Transmission Date: 20080703
  Serious: Yes (Other)
  Sender: FDA-Public Use
  Company Number: None

PATIENT
  Age: 16 Month
  Sex: Male
  Weight: 10.8863 kg

DRUGS (1)
  1. CHILDREN'S MOTRIN [Suspect]
     Indication: PYREXIA
     Dosage: 1 TEA SPOON EVERY SIX HOURS BUCCAL
     Route: 002

REACTIONS (8)
  - ASTHMA [None]
  - BLISTER [None]
  - CONVULSION [None]
  - DRUG HYPERSENSITIVITY [None]
  - EAR INFECTION [None]
  - EYE ROLLING [None]
  - RASH [None]
  - SINUS DISORDER [None]
